FAERS Safety Report 17179018 (Version 1)
Quarter: 2019Q4

REPORT INFORMATION
  Report Type: Spontaneous
  Country: FR (occurrence: FR)
  Receive Date: 20191219
  Receipt Date: 20191219
  Transmission Date: 20200122
  Serious: Yes (Other)
  Sender: FDA-Public Use
  Company Number: FR-TEVA-2019-FR-1153477

PATIENT
  Age: 49 Year
  Sex: Female

DRUGS (2)
  1. TAMOXIFENE (CITRATE DE) [Suspect]
     Active Substance: TAMOXIFEN CITRATE
     Indication: BREAST CANCER
     Route: 048
     Dates: start: 201901
  2. CHLORMADINONE (ACETATE DE) [Suspect]
     Active Substance: CHLORMADINONE ACETATE
     Indication: METRORRHAGIA
     Dosage: 2 DOSAGE FORMS
     Route: 048
     Dates: start: 2011, end: 201808

REACTIONS (1)
  - Meningioma [Not Recovered/Not Resolved]

NARRATIVE: CASE EVENT DATE: 20190325
